FAERS Safety Report 15776376 (Version 1)
Quarter: 2018Q4

REPORT INFORMATION
  Report Type: Spontaneous
  Country: JP (occurrence: JP)
  Receive Date: 20181231
  Receipt Date: 20181231
  Transmission Date: 20190205
  Serious: Yes (Other)
  Sender: FDA-Public Use
  Company Number: JP-BRISTOL-MYERS SQUIBB COMPANY-BMS-2018-122054

PATIENT
  Sex: Female

DRUGS (2)
  1. URSO [Suspect]
     Active Substance: URSODIOL
     Indication: PRODUCT USED FOR UNKNOWN INDICATION
     Route: 048
  2. BARACLUDE [Suspect]
     Active Substance: ENTECAVIR
     Indication: HEPATITIS B
     Route: 048

REACTIONS (7)
  - Off label use [Unknown]
  - Intentional dose omission [Unknown]
  - Dyspepsia [Unknown]
  - Melaena [Unknown]
  - Hepatic function abnormal [Unknown]
  - Chronic gastritis [Unknown]
  - Laryngeal discomfort [Unknown]
